FAERS Safety Report 14713379 (Version 1)
Quarter: 2018Q2

REPORT INFORMATION
  Report Type: Spontaneous
  Country: US (occurrence: US)
  Receive Date: 20180404
  Receipt Date: 20180404
  Transmission Date: 20180711
  Serious: No
  Sender: FDA-Public Use
  Company Number: US-PFIZER INC-2017411714

PATIENT
  Age: 15 Year
  Sex: Male
  Weight: 44 kg

DRUGS (2)
  1. GENOTROPIN [Suspect]
     Active Substance: SOMATROPIN
     Indication: GROWTH HORMONE DEFICIENCY
     Dosage: 2 MG, 1X/DAY
     Route: 058
     Dates: start: 2015
  2. GENOTROPIN [Suspect]
     Active Substance: SOMATROPIN
     Dosage: 2.2 MG, 1X/DAY(AT BEDTIME)
     Route: 058

REACTIONS (3)
  - Drug dose omission [Unknown]
  - Rash generalised [Unknown]
  - Device battery issue [Unknown]

NARRATIVE: CASE EVENT DATE: 20170920
